FAERS Safety Report 4554852-5 (Version None)
Quarter: 2005Q1

REPORT INFORMATION
  Report Type: 
  Country: None (occurrence: None)
  Receive Date: 20050114
  Receipt Date: 20041206
  Transmission Date: 20050727
  Serious: Yes (Hospitalization)
  Sender: FDA-Public Use
  Company Number: PHHO2004PH13333

PATIENT
  Age: 44 Year
  Sex: Male
  Weight: 56 kg

DRUGS (11)
  1. RIFAMPICIN [Suspect]
     Indication: PULMONARY TUBERCULOSIS
     Dosage: ORAL
     Route: 048
     Dates: start: 20030929, end: 20041130
  2. RIMACTAZID (NGX) (RIFAMPICIN, ISONIAZID, PYRAZINAMIDE) TABLET [Suspect]
     Indication: PULMONARY TUBERCULOSIS
     Dosage: ORAL
     Route: 048
     Dates: start: 20031201, end: 20040405
  3. . [Concomitant]
  4. . [Concomitant]
  5. . [Concomitant]
  6. . [Concomitant]
  7. . [Concomitant]
  8. . [Concomitant]
  9. . [Concomitant]
  10. . [Concomitant]
  11. . [Concomitant]

REACTIONS (5)
  - DISEASE PROGRESSION [None]
  - EMPHYSEMA [None]
  - EMPYEMA [None]
  - PLEURAL EFFUSION [None]
  - PLEURAL FIBROSIS [None]
